FAERS Safety Report 15222338 (Version 1)
Quarter: 2018Q3

REPORT INFORMATION
  Report Type: Spontaneous
  Country: DE (occurrence: DE)
  Receive Date: 20180731
  Receipt Date: 20180731
  Transmission Date: 20181010
  Serious: Yes (Hospitalization)
  Sender: FDA-Public Use
  Company Number: DE-ALLERGAN-1837554US

PATIENT
  Age: 63 Year
  Sex: Female
  Weight: 56 kg

DRUGS (17)
  1. NOCUTIL [Suspect]
     Active Substance: DESMOPRESSIN ACETATE
     Dosage: 0.1MG?0.05MG?0.1MG, REPORTED IN LABORATORY LETTER FROM /AUG/2016
     Route: 048
  2. SODIUM CHLORIDE. [Concomitant]
     Active Substance: SODIUM CHLORIDE
     Dosage: UNK
  3. IBANDRONIC ACID. [Concomitant]
     Active Substance: IBANDRONIC ACID
     Indication: PRODUCT USED FOR UNKNOWN INDICATION
     Dosage: EVERY 3 MONTH
     Route: 065
     Dates: end: 201701
  4. CITALOPRAM HYDROBROMIDE ? BP [Suspect]
     Active Substance: CITALOPRAM HYDROBROMIDE
     Indication: PRODUCT USED FOR UNKNOWN INDICATION
     Dosage: 10 MG, QD
     Route: 065
     Dates: start: 201309, end: 201507
  5. NOCUTIL [Suspect]
     Active Substance: DESMOPRESSIN ACETATE
     Dosage: UNK, TID
     Route: 048
  6. SODIUM CHLORIDE. [Concomitant]
     Active Substance: SODIUM CHLORIDE
     Indication: PRODUCT USED FOR UNKNOWN INDICATION
     Dosage: 2 OR 3 TIMES DAILY
     Route: 048
  7. ESTRAMON [Concomitant]
     Active Substance: ESTRADIOL
     Indication: OSTEOPOROSIS POSTMENOPAUSAL
     Dosage: 25 ?G, UNK
     Route: 062
  8. HYDROCORTISONE. [Concomitant]
     Active Substance: HYDROCORTISONE
     Dosage: UNK
     Route: 048
  9. NOCUTIL [Suspect]
     Active Substance: DESMOPRESSIN ACETATE
     Indication: INAPPROPRIATE ANTIDIURETIC HORMONE SECRETION
     Dosage: UNK, TID (0.1?0.05?0.05)
     Route: 048
  10. NOCUTIL [Suspect]
     Active Substance: DESMOPRESSIN ACETATE
     Dosage: INCREASED TO 3X0.2 MG/D; FURTHER REDUCED TO MAX 0.4 MG/D
     Route: 048
     Dates: start: 201409
  11. HYDROCORTISONE. [Concomitant]
     Active Substance: HYDROCORTISONE
     Dosage: 5 MG BID, ON MORNING AND AT NOON
     Route: 048
  12. RAMIPRIL. [Suspect]
     Active Substance: RAMIPRIL
     Indication: HYPERTENSION
     Dosage: 0.5 DF, QD
     Route: 048
     Dates: start: 201401
  13. ESTRAMON [Concomitant]
     Active Substance: ESTRADIOL
     Dosage: UNK
     Route: 062
     Dates: start: 2017
  14. HYDROCORTISONE. [Concomitant]
     Active Substance: HYDROCORTISONE
     Indication: GLUCOCORTICOID DEFICIENCY
     Dosage: 1.5 DF, QD
     Route: 048
     Dates: start: 20140909
  15. PANTOPRAZOLE [Concomitant]
     Active Substance: PANTOPRAZOLE
     Indication: PRODUCT USED FOR UNKNOWN INDICATION
     Dosage: 20 MG, PRN
     Route: 048
  16. DEKRISTOL [Concomitant]
     Active Substance: CHOLECALCIFEROL
     Indication: PRODUCT USED FOR UNKNOWN INDICATION
     Dosage: UNK
     Route: 065
  17. DEKRISTOL [Concomitant]
     Active Substance: CHOLECALCIFEROL
     Dosage: ONCE AT WEEK, REPORTED IN LABORATORY LETTER FROM MAR?2017
     Route: 065

REACTIONS (14)
  - Muscular weakness [Unknown]
  - Hyperhidrosis [Unknown]
  - Dysgeusia [Unknown]
  - Hyponatraemia [Recovering/Resolving]
  - Urticaria [Unknown]
  - Headache [Not Recovered/Not Resolved]
  - Nausea [Not Recovered/Not Resolved]
  - Syncope [Recovered/Resolved]
  - Pleural effusion [Unknown]
  - Contusion [Recovering/Resolving]
  - Abdominal discomfort [Recovered/Resolved]
  - Urine output decreased [Unknown]
  - Hypertension [Unknown]
  - Drug prescribing error [Unknown]

NARRATIVE: CASE EVENT DATE: 20150526
